FAERS Safety Report 4956397-7 (Version None)
Quarter: 2006Q1

REPORT INFORMATION
  Report Type: 
  Country: None (occurrence: None)
  Receive Date: 20060328
  Receipt Date: 20060328
  Transmission Date: 20060701
  Serious: Yes (Hospitalization)
  Sender: FDA-Public Use
  Company Number: None

PATIENT
  Age: 17 Month
  Sex: Male
  Weight: 10 kg

DRUGS (1)
  1. XYREM [Suspect]
     Indication: ACCIDENTAL OVERDOSE
     Dosage: ORAL SOLUTION 500 MG /ML SINGLE INGESTION UNKNOWN QUANTITY
     Route: 048
     Dates: start: 20060326

REACTIONS (3)
  - ACCIDENTAL DRUG INTAKE BY CHILD [None]
  - DEPRESSED LEVEL OF CONSCIOUSNESS [None]
  - MEDICATION ERROR [None]
